FAERS Safety Report 25318045 (Version 1)
Quarter: 2025Q2

REPORT INFORMATION
  Report Type: Spontaneous
  Country: CO (occurrence: CO)
  Receive Date: 20250515
  Receipt Date: 20250515
  Transmission Date: 20250717
  Serious: Yes (Life-Threatening, Hospitalization)
  Sender: ACCORD
  Company Number: CO-MLMSERVICE-20250502-PI497450-00232-1

PATIENT
  Age: 56 Year
  Sex: Female

DRUGS (3)
  1. MYCOPHENOLATE SODIUM [Suspect]
     Active Substance: MYCOPHENOLATE SODIUM
     Indication: Immunosuppressant drug therapy
     Route: 048
  2. PREDNISOLONE [Concomitant]
     Active Substance: PREDNISOLONE
     Indication: Immunosuppressant drug therapy
     Dosage: 2.5 MG/KG
     Route: 048
  3. TACROLIMUS [Concomitant]
     Active Substance: TACROLIMUS
     Indication: Immunosuppressant drug therapy
     Dosage: 3 MG IN THE MORNING AND 2 MG IN THE EVENING
     Route: 048

REACTIONS (5)
  - H3N2 influenza [Unknown]
  - Pancytopenia [Unknown]
  - Pneumatosis intestinalis [Recovering/Resolving]
  - Metabolic acidosis [Unknown]
  - Ascites [Recovered/Resolved]
